FAERS Safety Report 13496680 (Version 2)
Quarter: 2017Q2

REPORT INFORMATION
  Report Type: Spontaneous
  Country: US (occurrence: US)
  Receive Date: 20170428
  Receipt Date: 20170428
  Transmission Date: 20170830
  Serious: No
  Sender: FDA-Public Use
  Company Number: US-JAZZ-2017-US-004201

PATIENT
  Sex: Male

DRUGS (13)
  1. MAGNESIUM CHELATE [Concomitant]
     Active Substance: MAGNESIUM
  2. MODAFINIL. [Concomitant]
     Active Substance: MODAFINIL
  3. XYREM [Suspect]
     Active Substance: SODIUM OXYBATE
     Dosage: 4.5G, BID
     Route: 048
     Dates: start: 201612
  4. VITAMIN C [Concomitant]
     Active Substance: ASCORBIC ACID
  5. FLONASE                            /00908302/ [Concomitant]
     Active Substance: MOMETASONE FUROATE
  6. OMEGA-3                            /01866101/ [Concomitant]
     Active Substance: OMEGA-3 FATTY ACIDS
  7. PAROXETINE HYDROCHLORIDE. [Concomitant]
     Active Substance: PAROXETINE HYDROCHLORIDE
  8. XYREM [Suspect]
     Active Substance: SODIUM OXYBATE
     Indication: NARCOLEPSY
     Dosage: 2.25G, BID
     Route: 048
     Dates: start: 201608, end: 201608
  9. ADDERALL [Concomitant]
     Active Substance: AMPHETAMINE ASPARTATE\AMPHETAMINE SULFATE\DEXTROAMPHETAMINE SACCHARATE\DEXTROAMPHETAMINE SULFATE
  10. CETIRIZINE HCL [Concomitant]
     Active Substance: CETIRIZINE HYDROCHLORIDE
  11. XYREM [Suspect]
     Active Substance: SODIUM OXYBATE
     Dosage: DOSE ADJUSTMENT
     Route: 048
     Dates: start: 201608, end: 2016
  12. IBUPROFEN. [Concomitant]
     Active Substance: IBUPROFEN
  13. IRON [Concomitant]
     Active Substance: IRON

REACTIONS (2)
  - Eustachian tube obstruction [Not Recovered/Not Resolved]
  - Ear infection [Recovered/Resolved]
